FAERS Safety Report 14555915 (Version 3)
Quarter: 2019Q1

REPORT INFORMATION
  Report Type: Report from Study
  Country: FR (occurrence: FR)
  Receive Date: 20180221
  Receipt Date: 20190215
  Transmission Date: 20190417
  Serious: Yes (Hospitalization)
  Sender: FDA-Public Use
  Company Number: FR-ROCHE-1026701

PATIENT
  Age: 59 Year
  Sex: Female
  Weight: 63 kg

DRUGS (9)
  1. LYSANXIA [Concomitant]
     Active Substance: PRAZEPAM
     Route: 065
     Dates: start: 2011
  2. VESICARE [Concomitant]
     Active Substance: SOLIFENACIN SUCCINATE
     Route: 065
     Dates: start: 20111205
  3. IXPRIM [Concomitant]
     Active Substance: ACETAMINOPHEN\TRAMADOL HYDROCHLORIDE
     Route: 065
     Dates: start: 20111109
  4. DOCETAXEL. [Suspect]
     Active Substance: DOCETAXEL
     Indication: COLORECTAL CANCER
     Dosage: 100 MG/M^2
     Route: 042
     Dates: start: 20110927
  5. DEXAMYL [Concomitant]
     Active Substance: AMOBARBITAL\DEXTROAMPHETAMINE SULFATE
     Route: 065
     Dates: start: 20111219
  6. BEVACIZUMAB. [Suspect]
     Active Substance: BEVACIZUMAB
     Indication: COLORECTAL CANCER
     Dosage: LAST DOSE PRIOR TO AE: 19/DEC/2011, 15 MG/KG WILL BE ADMINISTERED AS IV INFUSION OVER 90 MINUTES FRO
     Route: 042
     Dates: start: 20111108
  7. DEFIBROTIDE [Concomitant]
     Active Substance: DEFIBROTIDE (BOVINE)
     Indication: COLORECTAL CANCER
     Route: 065
     Dates: start: 20111108
  8. TRASTUZUMAB. [Suspect]
     Active Substance: TRASTUZUMAB
     Indication: COLORECTAL CANCER
     Dosage: TRASTUZUMAB WILL BE ADMINISTERED AS A LOADING DOSE OF 8 MG/KG AS IV INFUSION IN CYCLE 1, FOLLOWED BY
     Route: 042
     Dates: start: 20110927
  9. GLYCEROLUM [Concomitant]
     Route: 065
     Dates: start: 20111128

REACTIONS (2)
  - Lung disorder [Recovered/Resolved]
  - Febrile bone marrow aplasia [Recovered/Resolved]

NARRATIVE: CASE EVENT DATE: 20111227
